FAERS Safety Report 24604645 (Version 1)
Quarter: 2024Q4

REPORT INFORMATION
  Report Type: Spontaneous
  Country: FR (occurrence: FR)
  Receive Date: 20241111
  Receipt Date: 20241111
  Transmission Date: 20250115
  Serious: Yes (Life-Threatening)
  Sender: MYLAN
  Company Number: None

PATIENT
  Age: 63 Year
  Sex: Male

DRUGS (7)
  1. CEFAZOLIN [Suspect]
     Active Substance: CEFAZOLIN
     Indication: Prophylaxis
     Dosage: 2 GRAM, TOTAL
     Route: 042
     Dates: start: 20240930, end: 20240930
  2. DEXAMETHASONE [Suspect]
     Active Substance: DEXAMETHASONE
     Indication: Prophylaxis of nausea and vomiting
     Dosage: UNK
     Route: 042
     Dates: start: 20240930, end: 20240930
  3. REMIFENTANIL [Suspect]
     Active Substance: REMIFENTANIL
     Indication: Anaesthesia
     Dosage: UNK
     Route: 042
     Dates: start: 20240930, end: 20240930
  4. ATRACURIUM [Suspect]
     Active Substance: ATRACURIUM
     Indication: Anaesthesia
     Dosage: 2 GRAM, TOTAL
     Route: 042
     Dates: start: 20240930, end: 20240930
  5. SUCCINYLATED GELATIN [Suspect]
     Active Substance: SUCCINYLATED GELATIN
     Indication: Blood volume expansion
     Dosage: UNK
     Route: 042
     Dates: start: 20240930, end: 20240930
  6. KETOPROFEN [Suspect]
     Active Substance: KETOPROFEN
     Indication: Perioperative analgesia
     Dosage: UNK
     Route: 042
     Dates: start: 20240930, end: 20240930
  7. KETAMINE HYDROCHLORIDE [Suspect]
     Active Substance: KETAMINE HYDROCHLORIDE
     Indication: Perioperative analgesia
     Dosage: UNK
     Route: 042
     Dates: start: 20240930, end: 20240930

REACTIONS (1)
  - Anaphylactic shock [Recovered/Resolved]

NARRATIVE: CASE EVENT DATE: 20240930
